FAERS Safety Report 19956100 (Version 2)
Quarter: 2024Q1

REPORT INFORMATION
  Report Type: Spontaneous
  Country: GB (occurrence: GB)
  Receive Date: 20211014
  Receipt Date: 20240326
  Transmission Date: 20240409
  Serious: Yes (Other)
  Sender: FDA-Public Use
  Company Number: GB-MHRA-TPP12557200C6173656YC1632911425322

PATIENT
  Age: 88 Year
  Sex: Female
  Weight: 84 kg

DRUGS (4)
  1. ROSUVASTATIN [Suspect]
     Active Substance: ROSUVASTATIN
     Dosage: 5MG
     Route: 065
     Dates: start: 20210805, end: 20210927
  2. CANDESARTAN [Concomitant]
     Active Substance: CANDESARTAN
     Dates: start: 20210629
  3. OILATUM [Concomitant]
     Dates: start: 20210303
  4. ACETAMINOPHEN [Concomitant]
     Active Substance: ACETAMINOPHEN
     Dosage: TIME INTERVAL: AS NECESSARY: TAKE 1 OR 2 4 TIMES/DAY
     Dates: start: 20210303

REACTIONS (2)
  - Myalgia [Recovered/Resolved]
  - Diarrhoea [Recovered/Resolved]

NARRATIVE: CASE EVENT DATE: 20210929
